FAERS Safety Report 6485306-7 (Version None)
Quarter: 2009Q4

REPORT INFORMATION
  Report Type: 
  Country: None (occurrence: None)
  Receive Date: 20091209
  Receipt Date: 20090619
  Transmission Date: 20100525
  Serious: No
  Sender: FDA-Public Use
  Company Number: US-AMGEN-KDL352304

PATIENT
  Sex: Female
  Weight: 102.2 kg

DRUGS (7)
  1. ENBREL [Suspect]
     Indication: RHEUMATOID ARTHRITIS
     Route: 058
     Dates: start: 20041101
  2. METHOTREXATE [Concomitant]
     Dates: start: 20040701
  3. LEVOXYL [Concomitant]
  4. PRILOSEC [Concomitant]
  5. ALEVE [Concomitant]
  6. NIACIN [Concomitant]
  7. VITAMINS [Concomitant]

REACTIONS (2)
  - CONTUSION [None]
  - SINUSITIS [None]
